FAERS Safety Report 9779840 (Version 3)
Quarter: 2014Q1

REPORT INFORMATION
  Report Type: Spontaneous
  Country: US (occurrence: US)
  Receive Date: 20131223
  Receipt Date: 20140123
  Transmission Date: 20141002
  Serious: No
  Sender: FDA-Public Use
  Company Number: US-PFIZER INC-2013331471

PATIENT
  Sex: 0

DRUGS (3)
  1. IFOSFAMIDE [Suspect]
     Dosage: UNK
  2. IFOSFAMIDE [Suspect]
     Dosage: UNK
  3. IFOSFAMIDE [Suspect]

REACTIONS (2)
  - Circumstance or information capable of leading to medication error [Unknown]
  - Incorrect product storage [Unknown]
